FAERS Safety Report 9702075 (Version 1)
Quarter: 2013Q4

REPORT INFORMATION
  Report Type: Spontaneous
  Country: US (occurrence: None)
  Receive Date: 20131120
  Receipt Date: 20131120
  Transmission Date: 20140711
  Serious: Yes (Other)
  Sender: FDA-Public Use
  Company Number: None

PATIENT
  Age: 85 None
  Sex: Male
  Weight: 71.67 kg

DRUGS (12)
  1. FENTANYL TRANSDERMAL SYSTEM [Suspect]
     Indication: PAIN
     Dosage: 1 PATCH EVERY 72 HOURS EVERY 72 HORUS ON THE SKIN
     Dates: start: 20131010, end: 20131031
  2. HYDROCHLOROTHIAZIDE [Concomitant]
  3. LIPITOR [Concomitant]
  4. DEXILANT [Concomitant]
  5. DOXAZOSIN [Concomitant]
  6. FIMASTERIDE [Concomitant]
  7. PACEMARK [Concomitant]
  8. HYDROCODONE [Concomitant]
  9. CENTRUM SILVER [Concomitant]
  10. SAW PALMETTO [Concomitant]
  11. STOOL SOFTENERS [Concomitant]
  12. MIR LAX [Concomitant]

REACTIONS (4)
  - Inadequate analgesia [None]
  - Product quality issue [None]
  - Product adhesion issue [None]
  - Product quality issue [None]
